FAERS Safety Report 13350534 (Version 2)
Quarter: 2017Q2

REPORT INFORMATION
  Report Type: Spontaneous
  Country: DE (occurrence: DE)
  Receive Date: 20170320
  Receipt Date: 20170609
  Transmission Date: 20170830
  Serious: Yes (Hospitalization, Other)
  Sender: FDA-Public Use
  Company Number: DE-JNJFOC-20170304197

PATIENT
  Age: 77 Year
  Sex: Female
  Weight: 71.66 kg

DRUGS (6)
  1. ASPIRIN. [Concomitant]
     Active Substance: ASPIRIN
     Route: 065
  2. FRAXIPARINE [Concomitant]
     Active Substance: NADROPARIN CALCIUM
     Route: 065
  3. XARELTO [Suspect]
     Active Substance: RIVAROXABAN
     Indication: ATRIAL FIBRILLATION
     Route: 048
     Dates: start: 201703, end: 201703
  4. XARELTO [Suspect]
     Active Substance: RIVAROXABAN
     Indication: ATRIAL FIBRILLATION
     Route: 048
     Dates: start: 2013
  5. SIMVASTATIN. [Concomitant]
     Active Substance: SIMVASTATIN
     Route: 065
  6. ZOPICLON [Concomitant]
     Active Substance: ZOPICLONE
     Dosage: QUARTER OR HALF A TABLET AS NEEDED (20 TABLETS IN 3 MONTHS) UNK
     Route: 065

REACTIONS (4)
  - Cerebral haemorrhage [Unknown]
  - Renal vein embolism [Unknown]
  - Embolic cerebral infarction [Recovering/Resolving]
  - Renal infarct [Unknown]

NARRATIVE: CASE EVENT DATE: 20170218
